FAERS Safety Report 14950852 (Version 2)
Quarter: 2018Q2

REPORT INFORMATION
  Report Type: Report from Study
  Country: None (occurrence: AU)
  Receive Date: 20180530
  Receipt Date: 20180601
  Transmission Date: 20180711
  Serious: Yes (Death, Hospitalization, Other)
  Sender: FDA-Public Use
  Company Number: AU-ABBVIE-18K-008-2370917-00

PATIENT
  Age: 76 Year
  Sex: Male

DRUGS (1)
  1. DUODOPA [Suspect]
     Active Substance: CARBIDOPA\LEVODOPA
     Indication: PARKINSON^S DISEASE
     Dosage: DAILY INFUSION
     Route: 050
     Dates: start: 20180306

REACTIONS (5)
  - Loss of consciousness [Unknown]
  - Fall [Unknown]
  - Head injury [Fatal]
  - Pain in extremity [Unknown]
  - Cerebral haemorrhage [Fatal]

NARRATIVE: CASE EVENT DATE: 201805
